FAERS Safety Report 14578353 (Version 2)
Quarter: 2018Q1

REPORT INFORMATION
  Report Type: Spontaneous
  Country: KR (occurrence: KR)
  Receive Date: 20180227
  Receipt Date: 20180306
  Transmission Date: 20180509
  Serious: Yes (Death, Life-Threatening, Hospitalization, Other)
  Sender: FDA-Public Use
  Company Number: PHHY2018KR030504

PATIENT
  Age: 75 Year
  Sex: Male
  Weight: 75 kg

DRUGS (1)
  1. EXJADE [Suspect]
     Active Substance: DEFERASIROX
     Indication: IRON OVERLOAD
     Dosage: 1500 MG, QD
     Route: 048
     Dates: start: 20150629, end: 20151103

REACTIONS (29)
  - Sepsis [Fatal]
  - Blood glucose abnormal [Unknown]
  - Blood lactate dehydrogenase abnormal [Unknown]
  - Blood phosphorus abnormal [Unknown]
  - Haematocrit abnormal [Unknown]
  - PCO2 abnormal [Unknown]
  - Anion gap increased [Unknown]
  - Blood bicarbonate abnormal [Unknown]
  - Blood bilirubin abnormal [Unknown]
  - Blood calcium abnormal [Unknown]
  - Alanine aminotransferase increased [Unknown]
  - Aspartate aminotransferase abnormal [Unknown]
  - Blood albumin abnormal [Unknown]
  - Blood potassium abnormal [Unknown]
  - Heart rate abnormal [Unknown]
  - Blood creatinine increased [Unknown]
  - Acute kidney injury [Fatal]
  - Acute myeloid leukaemia recurrent [Unknown]
  - Blood cholesterol abnormal [Unknown]
  - Blood alkaline phosphatase abnormal [Unknown]
  - Lymphocyte count abnormal [Unknown]
  - Multiple organ dysfunction syndrome [Fatal]
  - Anaemia [Fatal]
  - Decreased appetite [Fatal]
  - Dyspepsia [Fatal]
  - Blood urea abnormal [Unknown]
  - Neutrophil count abnormal [Unknown]
  - Thrombocytopenia [Fatal]
  - Bilirubin conjugated increased [Unknown]
